FAERS Safety Report 6360903-8 (Version None)
Quarter: 2009Q3

REPORT INFORMATION
  Report Type: 
  Country: None (occurrence: None)
  Receive Date: 20090918
  Receipt Date: 20090911
  Transmission Date: 20100115
  Serious: Yes (Hospitalization)
  Sender: FDA-Public Use
  Company Number: JP-B.I. PHARMACEUTICALS,INC./RIDGEFIELD-2009-BP-10688NB

PATIENT
  Age: 90 Year
  Sex: Female

DRUGS (4)
  1. SPIRIVA [Suspect]
     Indication: CHRONIC OBSTRUCTIVE PULMONARY DISEASE
     Dosage: 36 MCG
     Route: 055
  2. TULOBUTEROL [Concomitant]
     Indication: ASTHMA
     Dosage: 2 MG
     Route: 062
  3. DIOVAN [Concomitant]
     Indication: HYPERTENSION
     Dosage: 40 MG
     Route: 048
  4. ARDEPHYLLIN [Concomitant]
     Indication: ASTHMA
     Dosage: 200 MG
     Route: 048

REACTIONS (2)
  - OVERDOSE [None]
  - PNEUMONIA [None]
